FAERS Safety Report 12534780 (Version 2)
Quarter: 2016Q3

REPORT INFORMATION
  Report Type: Other
  Country: JP (occurrence: JP)
  Receive Date: 20160706
  Receipt Date: 20160906
  Transmission Date: 20161109
  Serious: Yes (Other)
  Sender: FDA-Public Use
  Company Number: JP-IGI LABORATORIES, INC.-1054751

PATIENT
  Age: 7 Year
  Sex: Male
  Weight: 22 kg

DRUGS (8)
  1. CALCINEURIN INHIBITORS [Concomitant]
     Active Substance: UNSPECIFIED INGREDIENT
     Route: 065
  2. PIPERACILLIN AND TAZOBACTAM [Concomitant]
     Active Substance: PIPERACILLIN SODIUM\TAZOBACTAM SODIUM
     Route: 065
  3. GENTAMICIN SULFATE. [Concomitant]
     Active Substance: GENTAMICIN SULFATE
     Route: 065
  4. METHYLPREDNISOLONE. [Concomitant]
     Active Substance: METHYLPREDNISOLONE
     Route: 065
  5. FORTAZ [Suspect]
     Active Substance: CEFTAZIDIME SODIUM
     Indication: PERITONITIS BACTERIAL
     Route: 042
  6. GANCICLOVIR. [Concomitant]
     Active Substance: GANCICLOVIR
     Route: 065
  7. VANCOMYCIN HYDROCHLORIDE. [Concomitant]
     Active Substance: VANCOMYCIN HYDROCHLORIDE
     Route: 065
  8. MEROPENEM. [Concomitant]
     Active Substance: MEROPENEM
     Route: 065

REACTIONS (6)
  - Bone marrow failure [Unknown]
  - Fungal infection [Unknown]
  - White blood cell count decreased [Recovered/Resolved]
  - Bacterial translocation [Unknown]
  - Fungaemia [Unknown]
  - Platelet count decreased [Recovered/Resolved]
